FAERS Safety Report 9439770 (Version 3)
Quarter: 2013Q3

REPORT INFORMATION
  Report Type: Spontaneous
  Country: DE (occurrence: DE)
  Receive Date: 20130805
  Receipt Date: 20130813
  Transmission Date: 20140515
  Serious: Yes (Life-Threatening, Hospitalization)
  Sender: FDA-Public Use
  Company Number: DE-AMGEN-DEUSP2013054262

PATIENT
  Age: 84 Year
  Sex: Male
  Weight: 69.5 kg

DRUGS (13)
  1. PANITUMUMAB [Suspect]
     Indication: PRODUCT USED FOR UNKNOWN INDICATION
     Dosage: 6 MG/KG, ONE LINE, EVERY 14 DAYS
     Route: 065
     Dates: start: 20130618
  2. PANITUMUMAB [Suspect]
     Dosage: UNK
     Route: 065
  3. DOXYCYCLINE [Suspect]
     Indication: PRODUCT USED FOR UNKNOWN INDICATION
     Dosage: 100 MG, 2/D
     Route: 065
     Dates: start: 20130617
  4. DOXYCYCLINE [Suspect]
     Dosage: 100 G, UNK
     Route: 065
  5. DOXYCYCLINE [Suspect]
     Dosage: UNK
     Route: 065
  6. OXALIPLATIN [Concomitant]
     Dosage: 85 MG/M2, UNK
     Dates: start: 20130618
  7. 5-FU                               /00098801/ [Concomitant]
     Dosage: 400 MG/M2, UNK
     Route: 040
     Dates: start: 20130618
  8. 5-FU                               /00098801/ [Concomitant]
     Dosage: 600 MG/M2, UNK
     Dates: start: 20130618
  9. ONCOFOLIC [Concomitant]
     Dosage: 200 MG/M2, UNK
     Dates: start: 20130618
  10. ACITROM [Concomitant]
     Dosage: UNK
  11. LOSARTAN [Concomitant]
     Dosage: UNK
  12. METOPROLOL [Concomitant]
     Dosage: UNK
  13. ALLOPURINOL [Concomitant]
     Dosage: 300 UNK, UNK

REACTIONS (1)
  - General physical health deterioration [Unknown]
